FAERS Safety Report 8066250-0 (Version None)
Quarter: 2012Q1

REPORT INFORMATION
  Report Type: 
  Country: None (occurrence: None)
  Receive Date: 20120124
  Receipt Date: 20120116
  Transmission Date: 20120608
  Serious: Yes (Hospitalization, Other)
  Sender: FDA-Public Use
  Company Number: US-JNJFOC-20110205026

PATIENT
  Age: 19 Year
  Sex: Male
  Weight: 83.92 kg

DRUGS (13)
  1. FERROUS SULFATE TAB [Concomitant]
     Route: 048
  2. ASCORBIC ACID [Concomitant]
     Route: 048
  3. MULTI-VITAMINS [Concomitant]
     Route: 048
  4. KLONOPIN [Concomitant]
     Route: 048
  5. HEPARIN [Concomitant]
     Route: 058
  6. DOCUSATE [Concomitant]
     Route: 048
  7. ASCORBIC ACID [Concomitant]
     Route: 048
  8. MYLANTA [Concomitant]
     Indication: DYSPEPSIA
     Dosage: AS NEEDED
     Route: 048
  9. ZIPRASIDONE HYDROCHLORIDE [Concomitant]
     Indication: PRODUCT USED FOR UNKNOWN INDICATION
     Route: 048
  10. DOXAZOSIN MESYLATE [Concomitant]
     Route: 048
  11. NEXIUM [Concomitant]
     Route: 048
  12. INVEGA SUSTENNA [Suspect]
     Indication: SCHIZOPHRENIA
     Route: 030
     Dates: start: 20110214
  13. KLONOPIN [Concomitant]
     Route: 048

REACTIONS (2)
  - PRODUCT QUALITY ISSUE [None]
  - ANAPHYLACTOID REACTION [None]
